FAERS Safety Report 10669540 (Version 1)
Quarter: 2014Q4

REPORT INFORMATION
  Report Type: Spontaneous
  Country: US (occurrence: US)
  Receive Date: 20141222
  Receipt Date: 20141222
  Transmission Date: 20150529
  Serious: No
  Sender: FDA-Public Use
  Company Number: US-SA-2014SA158792

PATIENT
  Sex: Female

DRUGS (1)
  1. AUBAGIO [Suspect]
     Active Substance: TERIFLUNOMIDE
     Route: 065

REACTIONS (5)
  - Dysgeusia [Unknown]
  - Decreased appetite [Unknown]
  - Sensory disturbance [Unknown]
  - Food aversion [Unknown]
  - Weight decreased [Unknown]
